FAERS Safety Report 16084900 (Version 1)
Quarter: 2019Q2

REPORT INFORMATION
  Report Type: Spontaneous
  Country: US (occurrence: US)
  Receive Date: 20190318
  Receipt Date: 20190318
  Transmission Date: 20190711
  Serious: Yes (Other)
  Sender: FDA-Public Use
  Company Number: None

PATIENT
  Age: 69 Year
  Sex: Male
  Weight: 91.8 kg

DRUGS (5)
  1. LIPITOR [Concomitant]
     Active Substance: ATORVASTATIN CALCIUM
  2. MELATONIN [Concomitant]
     Active Substance: MELATONIN
  3. AMIODARONE [Concomitant]
     Active Substance: AMIODARONE
  4. COLACE [Concomitant]
     Active Substance: DOCUSATE SODIUM
  5. WARFARIN SODIUM 5MG OBLONG-SHAPED TAB WITH TV 5 ON FRONT 1721 ON BACK [Suspect]
     Active Substance: WARFARIN SODIUM
     Indication: DEEP VEIN THROMBOSIS
     Dosage: ?          QUANTITY:1 TABLET(S);?
     Route: 048
     Dates: start: 20190228, end: 20190314

REACTIONS (2)
  - Product quality issue [None]
  - International normalised ratio decreased [None]

NARRATIVE: CASE EVENT DATE: 20190313
